FAERS Safety Report 4425642-9 (Version None)
Quarter: 2004Q3

REPORT INFORMATION
  Report Type: 
  Country: None (occurrence: None)
  Receive Date: 20040716
  Receipt Date: 20040304
  Transmission Date: 20050211
  Serious: Yes (Hospitalization, Other)
  Sender: FDA-Public Use
  Company Number: HQWYE630908MAR04

PATIENT
  Age: 83 Year
  Sex: Female
  Weight: 67.19 kg

DRUGS (5)
  1. ADVIL [Suspect]
     Indication: PAIN
     Dosage: 2 TABLET 1X PER 1 DAY, ORAL
     Route: 048
     Dates: start: 20000101, end: 20030101
  2. NITROGLYCERIN ^DAVID BULL^ (GLYCERYL TRINITRATE) [Concomitant]
  3. HYZAAR [Concomitant]
  4. SYNTHROID [Concomitant]
  5. TUSSIONEX (HYDROCODONE/PHENYLTOLOXAMINE) [Concomitant]

REACTIONS (1)
  - ULCER [None]
